FAERS Safety Report 5501978-5 (Version None)
Quarter: 2007Q4

REPORT INFORMATION
  Report Type: 
  Country: None (occurrence: None)
  Receive Date: 20071030
  Receipt Date: 20071025
  Transmission Date: 20080405
  Serious: Yes (Death, Life-Threatening, Disabling, Other)
  Sender: FDA-Public Use
  Company Number: A0683832A

PATIENT
  Age: 35 Year
  Sex: Female

DRUGS (4)
  1. WELLBUTRIN XL [Suspect]
     Indication: DEPRESSION
     Route: 048
  2. LEXAPRO [Concomitant]
     Dosage: 20MG IN THE MORNING
  3. XANAX [Concomitant]
     Dosage: 1MG AS REQUIRED
  4. AMBIEN [Concomitant]
     Dosage: 10MG AS REQUIRED

REACTIONS (3)
  - ALCOHOL USE [None]
  - CHEST PAIN [None]
  - OVERDOSE [None]
